FAERS Safety Report 4390743-0 (Version None)
Quarter: 2004Q3

REPORT INFORMATION
  Report Type: 
  Country: None (occurrence: None)
  Receive Date: 20040706
  Receipt Date: 20040706
  Transmission Date: 20050211
  Serious: No
  Sender: FDA-Public Use
  Company Number: None

PATIENT
  Age: 61 Year
  Sex: Female

DRUGS (9)
  1. ZETIA [Suspect]
     Indication: BLOOD CHOLESTEROL INCREASED
     Dosage: 10 MG PO QD
     Route: 048
     Dates: start: 20040422, end: 20040622
  2. NORVASC [Concomitant]
  3. NEURONTIN [Concomitant]
  4. BEXTRA [Concomitant]
  5. LIPITOR [Concomitant]
  6. NEXIUM [Concomitant]
  7. CATAPRESS [Concomitant]
  8. VIAGRA [Concomitant]
  9. SONATA [Concomitant]

REACTIONS (3)
  - LACRIMAL DISORDER [None]
  - PRURITUS [None]
  - SKIN FISSURES [None]
